FAERS Safety Report 6837038-0 (Version None)
Quarter: 2010Q3

REPORT INFORMATION
  Report Type: 
  Country: None (occurrence: None)
  Receive Date: 20100713
  Receipt Date: 20070427
  Transmission Date: 20110219
  Serious: No
  Sender: FDA-Public Use
  Company Number: US-PFIZER INC-2007034970

PATIENT
  Sex: Female

DRUGS (9)
  1. CHANTIX [Suspect]
     Indication: SMOKING CESSATION THERAPY
     Dates: start: 20070425
  2. NORVASC [Concomitant]
  3. FLUOXETINE HCL [Concomitant]
  4. METOPROLOL [Concomitant]
  5. DEPAKOTE [Concomitant]
  6. VYTORIN [Concomitant]
  7. ADVAIR DISKUS 100/50 [Concomitant]
     Route: 055
  8. SPIRIVA [Concomitant]
  9. ACETYLSALICYLIC ACID [Concomitant]

REACTIONS (4)
  - DIARRHOEA [None]
  - DIZZINESS [None]
  - NAUSEA [None]
  - VIRAL INFECTION [None]
